FAERS Safety Report 6819928-8 (Version None)
Quarter: 2010Q3

REPORT INFORMATION
  Report Type: 
  Country: None (occurrence: None)
  Receive Date: 20100707
  Receipt Date: 20100630
  Transmission Date: 20110219
  Serious: Yes (Other)
  Sender: FDA-Public Use
  Company Number: US-SANOFI-AVENTIS-2010SA037776

PATIENT
  Age: 60 Year
  Sex: Female

DRUGS (6)
  1. MULTAQ [Suspect]
     Indication: ATRIAL FIBRILLATION
     Route: 048
     Dates: start: 20100601, end: 20100629
  2. METOPROLOL [Suspect]
     Route: 048
     Dates: start: 20100601, end: 20100601
  3. PRAVASTATIN [Concomitant]
     Dates: start: 20100601
  4. VASOTEC [Concomitant]
     Dates: start: 19910101
  5. ASPIRIN [Concomitant]
     Dates: start: 20100101
  6. WARFARIN [Concomitant]
     Indication: PULMONARY EMBOLISM
     Dates: start: 20090701

REACTIONS (9)
  - ASTHENIA [None]
  - BLOOD PRESSURE INCREASED [None]
  - CARDIAC FAILURE CONGESTIVE [None]
  - DIZZINESS [None]
  - DYSPNOEA [None]
  - DYSURIA [None]
  - NAUSEA [None]
  - OEDEMA PERIPHERAL [None]
  - RENAL FAILURE [None]
